FAERS Safety Report 20333460 (Version 1)
Quarter: 2022Q1

REPORT INFORMATION
  Report Type: Report from Study
  Country: ES (occurrence: None)
  Receive Date: 20220113
  Receipt Date: 20220113
  Transmission Date: 20220423
  Serious: Yes (Other)
  Sender: FDA-Public Use
  Company Number: ES-Merck Healthcare KGaA-9278020

PATIENT
  Sex: Female

DRUGS (10)
  1. EUTHYROX [Suspect]
     Active Substance: LEVOTHYROXINE SODIUM
     Indication: Product used for unknown indication
  2. INTRALIPID [Suspect]
     Active Substance: EGG PHOSPHOLIPIDS\GLYCERIN\SOYBEAN OIL
     Indication: Product used for unknown indication
  3. HYDROXYCHLOROQUINE SULFATE [Suspect]
     Active Substance: HYDROXYCHLOROQUINE SULFATE
     Indication: Product used for unknown indication
  4. PREDNISONE [Suspect]
     Active Substance: PREDNISONE
     Indication: Product used for unknown indication
  5. HEPARIN [Suspect]
     Active Substance: HEPARIN SODIUM
     Indication: Product used for unknown indication
  6. ASPIRIN [Suspect]
     Active Substance: ASPIRIN
     Indication: Product used for unknown indication
  7. ISOVORIN [Suspect]
     Active Substance: LEUCOVORIN CALCIUM
     Indication: Product used for unknown indication
  8. CALCIUM PHOSPHATE, DIBASIC, ANHYDROUS\FERROUS SUCCINATE\MAGNESIUM HYDR [Suspect]
     Active Substance: CALCIUM PHOSPHATE, DIBASIC, ANHYDROUS\FERROUS SUCCINATE\MAGNESIUM HYDROXIDE
     Indication: Product used for unknown indication
  9. DIETARY SUPPLEMENT [Suspect]
     Active Substance: DIETARY SUPPLEMENT
     Indication: Product used for unknown indication
  10. ERGOCALCIFEROL [Suspect]
     Active Substance: ERGOCALCIFEROL
     Indication: Product used for unknown indication

REACTIONS (2)
  - Abortion [Recovered/Resolved]
  - Maternal exposure during pregnancy [Recovered/Resolved]
